FAERS Safety Report 25093996 (Version 1)
Quarter: 2025Q1

REPORT INFORMATION
  Report Type: Spontaneous
  Country: US (occurrence: None)
  Receive Date: 20250318
  Receipt Date: 20250318
  Transmission Date: 20250409
  Serious: Yes (unspecified)
  Sender: FDA-CTU
  Company Number: None

PATIENT
  Age: 53 Year
  Sex: Female
  Weight: 63 kg

DRUGS (1)
  1. BOTOX [Suspect]
     Active Substance: ONABOTULINUMTOXINA
     Indication: Migraine
     Dates: start: 20250311, end: 20250311

REACTIONS (1)
  - Drug hypersensitivity [None]

NARRATIVE: CASE EVENT DATE: 20250313
